FAERS Safety Report 20375035 (Version 1)
Quarter: 2022Q1

REPORT INFORMATION
  Report Type: Spontaneous
  Country: US (occurrence: None)
  Receive Date: 20220124
  Receipt Date: 20220124
  Transmission Date: 20220423
  Serious: Yes (Life-Threatening)
  Sender: FDA-Public Use
  Company Number: None

PATIENT
  Age: 74 Year
  Sex: Male
  Weight: 91.9 kg

DRUGS (1)
  1. LUMASON [Suspect]
     Active Substance: SULFUR HEXAFLUORIDE
     Indication: Flushing
     Route: 042
     Dates: start: 20220113

REACTIONS (7)
  - Flushing [None]
  - Feeling hot [None]
  - Unresponsive to stimuli [None]
  - Pulse absent [None]
  - Ventricular tachycardia [None]
  - Ventricular fibrillation [None]
  - Infusion related reaction [None]

NARRATIVE: CASE EVENT DATE: 20220113
